FAERS Safety Report 15017947 (Version 1)
Quarter: 2018Q2

REPORT INFORMATION
  Report Type: Spontaneous
  Country: DE (occurrence: DE)
  Receive Date: 20180615
  Receipt Date: 20180615
  Transmission Date: 20180711
  Serious: Yes (Hospitalization)
  Sender: FDA-Public Use
  Company Number: DE-PFIZER INC-2018237991

PATIENT
  Age: 79 Year
  Sex: Male
  Weight: 84 kg

DRUGS (8)
  1. CARBOPLATIN. [Suspect]
     Active Substance: CARBOPLATIN
     Dosage: 5 MG, SCHEME, SOLUTION FOR INJECTION/INFUSION
     Route: 042
  2. ETOPOSID [Suspect]
     Active Substance: ETOPOSIDE
     Dosage: 120 MG/M2, SCHEME, SOLUTION FOR INJECTION/INFUSION
     Route: 042
  3. METAMIZOLE [Concomitant]
     Active Substance: METAMIZOLE
     Dosage: 1000 MG, 4X/DAY, 1-1-1-1
     Route: 048
  4. ONDANSETRON [Concomitant]
     Active Substance: ONDANSETRON
     Dosage: 8 MG, AS NEEDED
     Route: 048
  5. XTANDI [Concomitant]
     Active Substance: ENZALUTAMIDE
     Dosage: 160 MG, 1X/DAY, 1-0-0-0
     Route: 048
  6. CLEXANE [Concomitant]
     Active Substance: ENOXAPARIN SODIUM
     Dosage: 8000 IU, 2X/DAY, 1-0-1-0
     Route: 058
  7. L-THYROXIN [Concomitant]
     Active Substance: LEVOTHYROXINE SODIUM
     Dosage: 75 UG, 1X/DAY,1-0-0-0
     Route: 048
  8. FIRMAGON [Concomitant]
     Active Substance: DEGARELIX ACETATE
     Dosage: UNK, UNK, SOLUTION FOR INJECTION/INFUSION
     Route: 042

REACTIONS (5)
  - General physical health deterioration [Unknown]
  - Chest pain [Unknown]
  - Fatigue [Unknown]
  - Dysuria [Unknown]
  - Pyrexia [Unknown]
